FAERS Safety Report 9126811 (Version 1)
Quarter: 2013Q1

REPORT INFORMATION
  Report Type: Spontaneous
  Country: US (occurrence: US)
  Receive Date: 20130228
  Receipt Date: 20130228
  Transmission Date: 20140127
  Serious: No
  Sender: FDA-Public Use
  Company Number: US-TARO-2012P1062732

PATIENT
  Age: 69 Year
  Sex: Female
  Weight: 86.18 kg

DRUGS (3)
  1. LAMOTRIGINE [Suspect]
     Route: 048
     Dates: start: 20120911, end: 20120925
  2. LAMOTRIGINE [Suspect]
     Indication: FIBROMYALGIA
     Route: 048
     Dates: start: 20120911, end: 20120925
  3. SYNTHROID [Concomitant]

REACTIONS (4)
  - Pain [Recovered/Resolved]
  - Depression [Recovered/Resolved]
  - Drug ineffective [Not Recovered/Not Resolved]
  - Product substitution issue [Recovered/Resolved]
